FAERS Safety Report 7051497-2 (Version None)
Quarter: 2010Q4

REPORT INFORMATION
  Report Type: 
  Country: None (occurrence: None)
  Receive Date: 20101019
  Receipt Date: 20101009
  Transmission Date: 20110411
  Serious: Yes (Other)
  Sender: FDA-Public Use
  Company Number: B0679784A

PATIENT
  Age: 5 Year

DRUGS (1)
  1. FLIXOTIDE [Suspect]
     Indication: PRODUCT USED FOR UNKNOWN INDICATION
     Route: 055
     Dates: start: 20080101

REACTIONS (1)
  - OSTEONECROSIS [None]
